FAERS Safety Report 14066955 (Version 1)
Quarter: 2017Q4

REPORT INFORMATION
  Report Type: Spontaneous
  Country: US (occurrence: US)
  Receive Date: 20171006
  Receipt Date: 20171006
  Transmission Date: 20180321
  Serious: Yes (Other)
  Sender: FDA-Public Use
  Company Number: None

PATIENT
  Sex: Female
  Weight: 125.1 kg

DRUGS (2)
  1. TRAZODONE [Concomitant]
     Active Substance: TRAZODONE HYDROCHLORIDE
  2. PHENTERMINE 30MG [Suspect]
     Active Substance: PHENTERMINE
     Indication: WEIGHT ABNORMAL
     Dosage: ?          QUANTITY:90 CAPSULE(S);?
     Route: 048

REACTIONS (2)
  - Product substitution issue [None]
  - Depression [None]
